FAERS Safety Report 25074465 (Version 1)
Quarter: 2025Q1

REPORT INFORMATION
  Report Type: Spontaneous
  Country: US (occurrence: US)
  Receive Date: 20250313
  Receipt Date: 20250313
  Transmission Date: 20250409
  Serious: Yes (Life-Threatening, Disabling, Other)
  Sender: Haleon PLC
  Company Number: US-HALEON-2232393

PATIENT
  Age: 63 Year
  Sex: Male

DRUGS (1)
  1. NICODERM CQ [Suspect]
     Active Substance: NICOTINE
     Indication: Tobacco use disorder
     Route: 061
     Dates: start: 20240610

REACTIONS (1)
  - Pleural mesothelioma malignant [Unknown]

NARRATIVE: CASE EVENT DATE: 20240710
